FAERS Safety Report 10432918 (Version 2)
Quarter: 2014Q4

REPORT INFORMATION
  Report Type: Spontaneous
  Country: DE (occurrence: DE)
  Receive Date: 20140905
  Receipt Date: 20141003
  Transmission Date: 20150528
  Serious: Yes (Other)
  Sender: FDA-Public Use
  Company Number: DE-WATSON-2014-19853

PATIENT
  Age: 33 Year
  Sex: Female
  Weight: 61 kg

DRUGS (2)
  1. FIBRISTAL (UNKNOWN) [Suspect]
     Active Substance: ULIPRISTAL
     Indication: UTERINE LEIOMYOMA
     Dosage: UNK, UNKNOWN
     Route: 065
     Dates: start: 201312, end: 201403
  2. FIBRISTAL (UNKNOWN) [Suspect]
     Active Substance: ULIPRISTAL
     Dosage: UNK, UNKNOWN
     Route: 065
     Dates: start: 20140509

REACTIONS (2)
  - Abdominal pain lower [Recovered/Resolved]
  - Uterine haemorrhage [Recovered/Resolved]
